FAERS Safety Report 17308731 (Version 1)
Quarter: 2020Q1

REPORT INFORMATION
  Report Type: Spontaneous
  Country: US (occurrence: US)
  Receive Date: 20200123
  Receipt Date: 20200123
  Transmission Date: 20200409
  Serious: Yes (Life-Threatening, Hospitalization)
  Sender: FDA-Public Use
  Company Number: US-SUN PHARMACEUTICAL INDUSTRIES LTD-2020R1-233644

PATIENT
  Age: 41 Year
  Sex: Male

DRUGS (1)
  1. LOPERAMIDE [Suspect]
     Active Substance: LOPERAMIDE
     Indication: PRODUCT USED FOR UNKNOWN INDICATION
     Dosage: UNK
     Route: 065

REACTIONS (9)
  - Electrocardiogram QRS complex prolonged [Unknown]
  - Electrocardiogram QT prolonged [Unknown]
  - Drug abuse [Unknown]
  - Syncope [Unknown]
  - Ventricular fibrillation [Unknown]
  - Ventricular tachycardia [Unknown]
  - Cardiotoxicity [Unknown]
  - Cardiac arrest [Unknown]
  - Overdose [Unknown]
